FAERS Safety Report 26157336 (Version 1)
Quarter: 2025Q4

REPORT INFORMATION
  Report Type: Spontaneous
  Country: US (occurrence: US)
  Receive Date: 20251215
  Receipt Date: 20251215
  Transmission Date: 20260117
  Serious: No
  Sender: ROCHE
  Company Number: US-ROCHE-10000456640

PATIENT
  Age: 35 Year
  Sex: Male

DRUGS (8)
  1. ALECTINIB [Suspect]
     Active Substance: ALECTINIB
     Indication: Lung adenocarcinoma
  2. ALECTINIB [Suspect]
     Active Substance: ALECTINIB
  3. LORLATINIB [Concomitant]
     Active Substance: LORLATINIB
     Indication: Lung adenocarcinoma
  4. LORLATINIB [Concomitant]
     Active Substance: LORLATINIB
  5. LORLATINIB [Concomitant]
     Active Substance: LORLATINIB
  6. LORLATINIB [Concomitant]
     Active Substance: LORLATINIB
  7. NIACIN [Concomitant]
     Active Substance: NIACIN
     Indication: Lung adenocarcinoma
  8. BRIGATINIB [Concomitant]
     Active Substance: BRIGATINIB
     Indication: Lung adenocarcinoma

REACTIONS (2)
  - Fatigue [Unknown]
  - Rash [Unknown]
